FAERS Safety Report 24577111 (Version 2)
Quarter: 2024Q4

REPORT INFORMATION
  Report Type: Spontaneous
  Country: CN (occurrence: CN)
  Receive Date: 20241104
  Receipt Date: 20241111
  Transmission Date: 20250115
  Serious: Yes (Other)
  Sender: NOVARTIS
  Company Number: CN-002147023-NVSC2024CN212607

PATIENT
  Age: 69 Year
  Sex: Female
  Weight: 44 kg

DRUGS (1)
  1. TOBRAMYCIN [Suspect]
     Active Substance: TOBRAMYCIN\TOBRAMYCIN SULFATE
     Indication: Keratitis
     Dosage: 0.1 G, BID
     Route: 047
     Dates: start: 20241021, end: 20241021

REACTIONS (6)
  - Corneal opacity [Recovering/Resolving]
  - Corneal epithelium defect [Recovering/Resolving]
  - Conjunctival hyperaemia [Recovering/Resolving]
  - Eye pain [Recovering/Resolving]
  - Photophobia [Recovering/Resolving]
  - Lacrimation disorder [Recovering/Resolving]

NARRATIVE: CASE EVENT DATE: 20241021
